FAERS Safety Report 9840475 (Version 1)
Quarter: 2013Q4

REPORT INFORMATION
  Report Type: Spontaneous
  Country: JP (occurrence: None)
  Receive Date: 20131211
  Receipt Date: 20131211
  Transmission Date: 20140711
  Serious: Yes (Hospitalization)
  Sender: FDA-Public Use
  Company Number: TKT01200700301

PATIENT
  Age: 26 Year
  Sex: Male
  Weight: 35.6 kg

DRUGS (2)
  1. IDURSULFASE (IDURSULFASE) (0.5 MILLIGRAM(S)/KILOGRAM, CONCENTRATE FOR SOLUTION FOR INFUSION) (IDURSULFASE) [Suspect]
     Indication: MUCOPOLYSACCHARIDOSIS II
     Dosage: 18 MG, 1 IN 1 WK), INTRAVENOUS
     Route: 042
     Dates: start: 20070324
  2. FUROSEMIDE (FUROSEMIDE) [Concomitant]

REACTIONS (4)
  - Flushing [None]
  - Urticaria [None]
  - Hypoaesthesia oral [None]
  - Infusion related reaction [None]
